FAERS Safety Report 7326966-8 (Version None)
Quarter: 2011Q1

REPORT INFORMATION
  Report Type: 
  Country: None (occurrence: None)
  Receive Date: 20110201
  Receipt Date: 20101222
  Transmission Date: 20110831
  Serious: Yes (Other)
  Sender: FDA-Public Use
  Company Number: 2010S1000298

PATIENT
  Age: 1 Month
  Sex: Male
  Weight: 1.09 kg

DRUGS (11)
  1. INOMAX [Suspect]
  2. CEFEPIME [Concomitant]
  3. GATIFLOXACIN [Concomitant]
  4. INOMAX [Suspect]
     Indication: PROPHYLAXIS
     Dosage: 10 PPM; INH, 5 PPM; INH, 5 PPM; INH
     Route: 055
     Dates: start: 20101207, end: 20101222
  5. INOMAX [Suspect]
     Indication: PROPHYLAXIS
     Dosage: 10 PPM; INH, 5 PPM; INH, 5 PPM; INH
     Route: 055
     Dates: start: 20101222, end: 20101226
  6. INOMAX [Suspect]
     Indication: PROPHYLAXIS
     Dosage: 10 PPM; INH, 5 PPM; INH, 5 PPM; INH
     Route: 055
     Dates: start: 20101202, end: 20101207
  7. NAFCILLAN [Concomitant]
  8. CAFFEINE [Concomitant]
  9. INOMAX [Suspect]
  10. VANCOMYCIN [Concomitant]
  11. SODIUM CHLORIDE [Concomitant]

REACTIONS (3)
  - STAPHYLOCOCCAL INFECTION [None]
  - ENTEROCOCCAL INFECTION [None]
  - SEPSIS [None]
